FAERS Safety Report 7547191-1 (Version None)
Quarter: 2011Q2

REPORT INFORMATION
  Report Type: 
  Country: None (occurrence: None)
  Receive Date: 20110614
  Receipt Date: 20110531
  Transmission Date: 20111010
  Serious: Yes (Hospitalization)
  Sender: FDA-Public Use
  Company Number: CO-UCBSA-034399

PATIENT
  Age: 5 Year
  Sex: Female
  Weight: 23 kg

DRUGS (3)
  1. OXCARBAZEPINE [Concomitant]
  2. LACOSAMIDE [Suspect]
     Indication: EPILEPSY
     Route: 048
     Dates: start: 20110531, end: 20110531
  3. LAMOTRIGINE [Concomitant]

REACTIONS (3)
  - NAUSEA [None]
  - HYPERHIDROSIS [None]
  - VOMITING [None]
